FAERS Safety Report 5281220-3 (Version None)
Quarter: 2007Q1

REPORT INFORMATION
  Report Type: 
  Country: None (occurrence: None)
  Receive Date: 20070323
  Receipt Date: 20070309
  Transmission Date: 20070707
  Serious: Yes (Other)
  Sender: FDA-Public Use
  Company Number: 2007000017

PATIENT
  Age: 85 Year
  Sex: Female

DRUGS (1)
  1. MACUGEN [Suspect]
     Dosage: INTRA-VITREAL
     Dates: start: 20061025, end: 20070115

REACTIONS (2)
  - INFLUENZA [None]
  - PHLEBITIS [None]
